FAERS Safety Report 12230476 (Version 3)
Quarter: 2016Q2

REPORT INFORMATION
  Report Type: Spontaneous
  Country: BR (occurrence: BR)
  Receive Date: 20160401
  Receipt Date: 20160518
  Transmission Date: 20160815
  Serious: Yes (Other)
  Sender: FDA-Public Use
  Company Number: BR-PFIZER INC-2016176842

PATIENT
  Age: 70 Year
  Sex: Female
  Weight: 69 kg

DRUGS (2)
  1. ARTELAC /00445101/ [Concomitant]
     Indication: EYE LUBRICATION THERAPY
     Dosage: 1 DROP IN EACH EYE, ONCE DAILY
     Route: 047
  2. XALATAN [Suspect]
     Active Substance: LATANOPROST
     Indication: GLAUCOMA
     Dosage: 1 DROP IN EACH EYE, DAILY (AT NIGHT)
     Route: 047
     Dates: start: 2009

REACTIONS (6)
  - Blindness [Unknown]
  - Insomnia [Unknown]
  - Eye pain [Unknown]
  - Eyelid oedema [Unknown]
  - Eye irritation [Unknown]
  - Eye swelling [Unknown]
